FAERS Safety Report 8935712 (Version 1)
Quarter: 2012Q4

REPORT INFORMATION
  Report Type: 
  Country: US (occurrence: US)
  Receive Date: 20121130
  Receipt Date: 20121130
  Transmission Date: 20130627
  Serious: Yes (Congenital Anomaly, Other)
  Sender: FDA-Public Use
  Company Number: PHEH2012US023344

PATIENT
  Sex: Male

DRUGS (6)
  1. TRILEPTAL [Suspect]
     Dosage: 1500 UKN, UNK
     Route: 064
     Dates: end: 20110818
  2. TRILEPTAL [Suspect]
     Dosage: 1750 UKN, UNK
     Route: 064
     Dates: start: 20110818, end: 20111024
  3. TRILEPTAL [Suspect]
     Dosage: 1800 UKN, UNK
     Route: 064
     Dates: start: 20111024
  4. TRILEPTAL [Suspect]
     Dosage: 2100 UKN, UNK
     Route: 064
  5. KEPPRA [Suspect]
     Dosage: 3000 UKN, UNK
     Route: 064
     Dates: end: 20111024
  6. KEPPRA [Suspect]
     Dosage: 3500 UKN, UNK
     Route: 064
     Dates: start: 20111024

REACTIONS (4)
  - Urethral valves [Not Recovered/Not Resolved]
  - Hydroureter [Not Recovered/Not Resolved]
  - Hydronephrosis [Not Recovered/Not Resolved]
  - Foetal exposure during pregnancy [Unknown]
